FAERS Safety Report 4345834-7 (Version None)
Quarter: 2004Q2

REPORT INFORMATION
  Report Type: 
  Country: None (occurrence: None)
  Receive Date: 20040423
  Receipt Date: 20040423
  Transmission Date: 20050107
  Serious: Yes (Other)
  Sender: FDA-Public Use
  Company Number: None

PATIENT
  Age: 48 Year
  Sex: Male
  Weight: 79.3795 kg

DRUGS (4)
  1. TWICE-A-DAY 12 HOUR NASAL SPRAY PROPHARMA INC. [Suspect]
     Indication: NASAL DECONGESTION THERAPY
     Dosage: USED A LOT ^PER PATIENT^
  2. ZITHROMAX [Suspect]
  3. AMOXICILLIN [Suspect]
  4. MULTIVITAMIN [Suspect]

REACTIONS (7)
  - ASTHENIA [None]
  - FATIGUE [None]
  - HEADACHE [None]
  - LOWER RESPIRATORY TRACT INFECTION [None]
  - NAUSEA [None]
  - SINUSITIS [None]
  - SOMNOLENCE [None]
